FAERS Safety Report 19185055 (Version 22)
Quarter: 2024Q1

REPORT INFORMATION
  Report Type: Spontaneous
  Country: CA (occurrence: CA)
  Receive Date: 20210427
  Receipt Date: 20240125
  Transmission Date: 20240410
  Serious: Yes (Hospitalization, Other)
  Sender: FDA-Public Use
  Company Number: CA-PFIZER INC-2021288171

PATIENT
  Age: 62 Year
  Sex: Female
  Weight: 76.3 kg

DRUGS (19)
  1. RUXIENCE [Suspect]
     Active Substance: RITUXIMAB-PVVR
     Indication: Granulomatosis with polyangiitis
     Dosage: 1000 MG, 2 DOSES (DAY 1 AND 15)
     Route: 042
     Dates: start: 202010
  2. RUXIENCE [Suspect]
     Active Substance: RITUXIMAB-PVVR
     Dosage: 1000 MG  DAY 1 AND 15 (PATIENT IS UNAWARE WHETHER SHE RECEIVED RUXIENCE OR RITUXAN)
     Route: 042
     Dates: start: 202010, end: 202010
  3. RUXIENCE [Suspect]
     Active Substance: RITUXIMAB-PVVR
     Dosage: 500 MG EVERY 6 MONTH
     Route: 042
  4. RUXIENCE [Suspect]
     Active Substance: RITUXIMAB-PVVR
     Dosage: 500 MG X 1 EVERY 6 MONTH
     Route: 042
     Dates: start: 20210401, end: 20210401
  5. RUXIENCE [Suspect]
     Active Substance: RITUXIMAB-PVVR
     Dosage: 500 MG EVERY 6 MONTH
     Route: 042
     Dates: start: 20210401, end: 20210401
  6. RUXIENCE [Suspect]
     Active Substance: RITUXIMAB-PVVR
     Dosage: 500 MG X 1 EVERY 6 MONTH
     Route: 042
     Dates: start: 20211111
  7. RUXIENCE [Suspect]
     Active Substance: RITUXIMAB-PVVR
     Dosage: 500 MG X 1 EVERY 6 MONTH
     Route: 042
     Dates: start: 20211111, end: 20221213
  8. RUXIENCE [Suspect]
     Active Substance: RITUXIMAB-PVVR
     Dosage: 500 MG X 1 EVERY 6 MONTH
     Route: 042
     Dates: start: 20220623
  9. RUXIENCE [Suspect]
     Active Substance: RITUXIMAB-PVVR
     Dosage: 500 MG X 1 EVERY 6 MONTHS
     Route: 042
     Dates: start: 20221213
  10. RUXIENCE [Suspect]
     Active Substance: RITUXIMAB-PVVR
     Dosage: 500 MG, EVERY YEAR, SUBSEQUENT DAY 1
     Route: 042
     Dates: start: 20240118
  11. ACETAMINOPHEN [Concomitant]
     Active Substance: ACETAMINOPHEN
     Indication: Premedication
     Dosage: 650 MG
     Dates: start: 20220623, end: 20220623
  12. ATOVAQUONE [Concomitant]
     Active Substance: ATOVAQUONE
     Dosage: UNK
  13. DIPHENHYDRAMINE [Concomitant]
     Active Substance: DIPHENHYDRAMINE
     Indication: Premedication
     Dosage: 50 MG
     Dates: start: 20220623, end: 20220623
  14. HUMAN IMMUNOGLOBULIN G [Concomitant]
     Active Substance: HUMAN IMMUNOGLOBULIN G
     Dosage: UNK, EVERY 4 WEEKS
  15. HUMAN IMMUNOGLOBULIN G [Concomitant]
     Active Substance: HUMAN IMMUNOGLOBULIN G
     Dosage: 1 DF, EVERY 4 WEEK (DOSAGE INFO: NOT PROVIDED, LAST DOSE NOV/DEC2021)
     Route: 065
     Dates: start: 2001, end: 2021
  16. METHYLPREDNISOLONE [Concomitant]
     Active Substance: METHYLPREDNISOLONE
     Indication: Premedication
     Dosage: 100 MG
     Dates: start: 20220623, end: 20220623
  17. PREDNISONE [Concomitant]
     Active Substance: PREDNISONE
     Dosage: 10 MG, 1X/DAY
     Route: 065
  18. PREDNISONE [Concomitant]
     Active Substance: PREDNISONE
     Dosage: 2.5 MG, 1X/DAY, TAPERING DOWN
     Route: 065
  19. PREDNISONE [Concomitant]
     Active Substance: PREDNISONE
     Dosage: 1 DF (2.5 MG), 1X/DAY
     Route: 065

REACTIONS (41)
  - Kidney infection [Recovered/Resolved]
  - Sepsis [Recovering/Resolving]
  - Spinal fracture [Not Recovered/Not Resolved]
  - Pyelonephritis [Unknown]
  - Pulmonary oedema [Unknown]
  - Paraesthesia oral [Recovered/Resolved]
  - Lip swelling [Recovered/Resolved]
  - Gallbladder disorder [Unknown]
  - Hernia [Unknown]
  - Fracture [Not Recovered/Not Resolved]
  - Cardiac disorder [Unknown]
  - Femur fracture [Unknown]
  - Upper limb fracture [Unknown]
  - Off label use [Unknown]
  - Intentional product use issue [Unknown]
  - Off label use [Unknown]
  - Urinary tract infection [Unknown]
  - Paraesthesia [Unknown]
  - Reading disorder [Unknown]
  - Illness [Unknown]
  - Chills [Not Recovered/Not Resolved]
  - Haemoglobin decreased [Not Recovered/Not Resolved]
  - Vomiting [Not Recovered/Not Resolved]
  - White blood cell count increased [Not Recovered/Not Resolved]
  - Decreased appetite [Not Recovered/Not Resolved]
  - Hypotension [Not Recovered/Not Resolved]
  - Nausea [Not Recovered/Not Resolved]
  - Pain in extremity [Not Recovered/Not Resolved]
  - Peripheral swelling [Not Recovered/Not Resolved]
  - Asthenia [Not Recovered/Not Resolved]
  - Red blood cell count decreased [Not Recovered/Not Resolved]
  - Pyrexia [Unknown]
  - Fatigue [Unknown]
  - Dizziness [Unknown]
  - Cortisol decreased [Unknown]
  - Gait disturbance [Unknown]
  - Balance disorder [Not Recovered/Not Resolved]
  - Sitting disability [Not Recovered/Not Resolved]
  - Malaise [Not Recovered/Not Resolved]
  - Blood pressure increased [Not Recovered/Not Resolved]
  - Oropharyngeal pain [Unknown]

NARRATIVE: CASE EVENT DATE: 20210310
